FAERS Safety Report 4068123 (Version 7)
Quarter: 2016Q3

REPORT INFORMATION
  Report Type: Spontaneous
  Country: US (occurrence: US)
  Receive Date: 20040121
  Receipt Date: 20160822
  Transmission Date: 20161109
  Serious: Yes (Congenital Anomaly, Other)
  Sender: FDA-Public Use
  Company Number: US-BRISTOL-MYERS SQUIBB COMPANY-12474623

PATIENT
  Sex: Male

DRUGS (2)
  1. ATAZANAVIR SULFATE [Suspect]
     Active Substance: ATAZANAVIR SULFATE
     Indication: PRODUCT USED FOR UNKNOWN INDICATION
     Dosage: 400 MG, QD
     Route: 064
     Dates: start: 20030724
  2. COMBIVIR [Concomitant]
     Active Substance: LAMIVUDINE\ZIDOVUDINE
     Indication: PRODUCT USED FOR UNKNOWN INDICATION
     Dosage: 1 DF, QD
     Route: 064
     Dates: start: 20030724

REACTIONS (9)
  - Pyelocaliectasis [Unknown]
  - Foetal exposure during pregnancy [Recovered/Resolved]
  - Gastrointestinal oedema [Unknown]
  - Foetal growth restriction [Unknown]
  - Dilatation atrial [Unknown]
  - Cerebral ventricle dilatation [Unknown]
  - Atrial septal defect [Unknown]
  - Ventricular hypertrophy [Unknown]
  - Foetal malformation [Unknown]

NARRATIVE: CASE EVENT DATE: 20040108
